FAERS Safety Report 8780994 (Version 1)
Quarter: 2012Q4

REPORT INFORMATION
  Report Type: 
  Country: BR (occurrence: BR)
  Receive Date: 20120913
  Receipt Date: 20120913
  Transmission Date: 20130627
  Serious: Yes (Death)
  Sender: FDA-Public Use
  Company Number: PHHY2012BR079564

PATIENT
  Sex: Male

DRUGS (1)
  1. DIOVAN AMLIBON [Suspect]
     Indication: BLOOD PRESSURE
     Dosage: 1 DF (160/5 mg), daily

REACTIONS (1)
  - Death [Fatal]
